FAERS Safety Report 7353207-8 (Version None)
Quarter: 2011Q1

REPORT INFORMATION
  Report Type: 
  Country: None (occurrence: None)
  Receive Date: 20110310
  Receipt Date: 20110310
  Transmission Date: 20110831
  Serious: No
  Sender: FDA-Public Use
  Company Number: None

PATIENT
  Sex: Female

DRUGS (1)
  1. ISOVIEW [Suspect]
     Indication: COMPUTERISED TOMOGRAM

REACTIONS (5)
  - PRURITUS [None]
  - THROAT IRRITATION [None]
  - UNEVALUABLE EVENT [None]
  - URTICARIA [None]
  - COUGH [None]
